FAERS Safety Report 11392151 (Version 1)
Quarter: 2015Q3

REPORT INFORMATION
  Report Type: Spontaneous
  Country: US (occurrence: US)
  Receive Date: 20150818
  Receipt Date: 20150818
  Transmission Date: 20151125
  Serious: Yes (Hospitalization, Other)
  Sender: FDA-Public Use
  Company Number: US-GLAXOSMITHKLINE-US2015117326

PATIENT
  Age: 56 Year
  Sex: Female

DRUGS (12)
  1. LYRICA [Concomitant]
     Active Substance: PREGABALIN
  2. OESTRADIOL [Concomitant]
     Active Substance: ESTROGENS
  3. HYDROCHLOROTHIAZIDE. [Concomitant]
     Active Substance: HYDROCHLOROTHIAZIDE
  4. SYNTHROID [Concomitant]
     Active Substance: LEVOTHYROXINE SODIUM
  5. FISH OIL [Concomitant]
     Active Substance: FISH OIL
  6. METOPROLOL [Concomitant]
     Active Substance: METOPROLOL
  7. ADVAIR DISKUS [Suspect]
     Active Substance: FLUTICASONE PROPIONATE\SALMETEROL XINAFOATE
     Indication: ASTHMA
     Dosage: 1 PUFF(S), BID
     Route: 055
  8. LORTAB (ACETAMINOPHEN + HYDROCODONE) [Concomitant]
  9. GLUCOPHAGE [Concomitant]
     Active Substance: METFORMIN HYDROCHLORIDE
  10. FLEXERIL [Concomitant]
     Active Substance: CYCLOBENZAPRINE HYDROCHLORIDE
  11. METANX [Concomitant]
     Active Substance: LEVOMEFOLATE CALCIUM\METHYLCOBALAMIN\PYRIDOXAL PHOSPHATE ANHYDROUS
  12. LASIX [Concomitant]
     Active Substance: FUROSEMIDE

REACTIONS (6)
  - Surgery [Recovered/Resolved]
  - Diabetes mellitus [Not Recovered/Not Resolved]
  - Catheterisation cardiac [Recovered/Resolved]
  - Neuropathy peripheral [Not Recovered/Not Resolved]
  - Stent placement [Recovered/Resolved]
  - Blood pressure abnormal [Recovering/Resolving]

NARRATIVE: CASE EVENT DATE: 2007
